FAERS Safety Report 4403405-8 (Version None)
Quarter: 2004Q3

REPORT INFORMATION
  Report Type: 
  Country: None (occurrence: None)
  Receive Date: 20040719
  Receipt Date: 20040702
  Transmission Date: 20050211
  Serious: Yes (Hospitalization)
  Sender: FDA-Public Use
  Company Number: 197828

PATIENT
  Sex: Male

DRUGS (2)
  1. AVONEX [Suspect]
     Indication: MULTIPLE SCLEROSIS
     Dosage: 30 MCG QW IM
     Route: 030
  2. PREDNISONE [Concomitant]

REACTIONS (4)
  - CONDITION AGGRAVATED [None]
  - GASTRIC HAEMORRHAGE [None]
  - MULTIPLE SCLEROSIS [None]
  - STRESS SYMPTOMS [None]
